FAERS Safety Report 6841378-9 (Version None)
Quarter: 2010Q3

REPORT INFORMATION
  Report Type: 
  Country: None (occurrence: None)
  Receive Date: 20100714
  Receipt Date: 20080212
  Transmission Date: 20110219
  Serious: No
  Sender: FDA-Public Use
  Company Number: US-PFIZER INC-2007052310

PATIENT
  Sex: Female
  Weight: 52.2 kg

DRUGS (7)
  1. CHANTIX [Suspect]
     Indication: SMOKING CESSATION THERAPY
     Route: 048
     Dates: start: 20070501
  2. VYTORIN [Concomitant]
  3. IBANDRONATE SODIUM [Concomitant]
  4. MINOCIN [Concomitant]
  5. ZOLOFT [Concomitant]
  6. CELEBREX [Concomitant]
  7. ALL OTHER THERAPEUTIC PRODUCTS [Concomitant]

REACTIONS (5)
  - ABNORMAL DREAMS [None]
  - CHEST PAIN [None]
  - HEADACHE [None]
  - NECK PAIN [None]
  - POOR QUALITY SLEEP [None]
